FAERS Safety Report 6394999-4 (Version None)
Quarter: 2009Q4

REPORT INFORMATION
  Report Type: 
  Country: None (occurrence: None)
  Receive Date: 20091009
  Receipt Date: 20091007
  Transmission Date: 20100525
  Serious: Yes (Hospitalization, Other)
  Sender: FDA-Public Use
  Company Number: IT-BAYER-200931230GPV

PATIENT
  Age: 40 Year
  Sex: Male

DRUGS (4)
  1. CIPROXIN [Suspect]
     Indication: POST PROCEDURAL INFECTION
     Route: 042
     Dates: start: 20090403, end: 20090408
  2. FIDATO [Suspect]
     Indication: POST PROCEDURAL INFECTION
     Route: 042
     Dates: start: 20090403, end: 20090409
  3. LEVOXACIN [Suspect]
     Indication: POST PROCEDURAL INFECTION
     Route: 048
     Dates: start: 20090403, end: 20090409
  4. EFFERALGAN [Concomitant]
     Indication: DRUG USE FOR UNKNOWN INDICATION
     Route: 048

REACTIONS (2)
  - ADVERSE EVENT [None]
  - HEPATITIS ACUTE [None]
